FAERS Safety Report 24402818 (Version 1)
Quarter: 2024Q4

REPORT INFORMATION
  Report Type: Spontaneous
  Country: AU (occurrence: AU)
  Receive Date: 20241007
  Receipt Date: 20241007
  Transmission Date: 20250115
  Serious: Yes (Hospitalization, Other)
  Sender: GENMAB
  Company Number: AU-ABBVIE-5948562

PATIENT
  Sex: Male

DRUGS (1)
  1. EPCORITAMAB [Suspect]
     Active Substance: EPCORITAMAB
     Indication: Diffuse large B-cell lymphoma
     Dosage: 0.16MG, 0.8MG, 48MG THEREAFTER
     Route: 058

REACTIONS (9)
  - Neoplasm progression [Unknown]
  - Cutaneous lymphoma [Unknown]
  - Confusional state [Recovering/Resolving]
  - Cytokine release syndrome [Recovering/Resolving]
  - Immune effector cell-associated neurotoxicity syndrome [Recovering/Resolving]
  - Pyrexia [Recovering/Resolving]
  - Cell marker increased [Unknown]
  - Skin lesion [Recovering/Resolving]
  - Rash erythematous [Unknown]
